FAERS Safety Report 13575664 (Version 1)
Quarter: 2017Q2

REPORT INFORMATION
  Report Type: Spontaneous
  Country: US (occurrence: US)
  Receive Date: 20170524
  Receipt Date: 20170524
  Transmission Date: 20170830
  Serious: No
  Sender: FDA-Public Use
  Company Number: US-ACCORD-048309

PATIENT
  Age: 52 Year
  Sex: Female
  Weight: 76.2 kg

DRUGS (1)
  1. QUETIAPINE ACCORD [Suspect]
     Active Substance: QUETIAPINE
     Indication: INITIAL INSOMNIA
     Dosage: LAST MONTH FOR ABOUT A WEEK
     Route: 048

REACTIONS (2)
  - Drug ineffective for unapproved indication [Not Recovered/Not Resolved]
  - Product substitution issue [Unknown]
